FAERS Safety Report 7954701-9 (Version None)
Quarter: 2011Q4

REPORT INFORMATION
  Report Type: 
  Country: None (occurrence: None)
  Receive Date: 20111202
  Receipt Date: 20111128
  Transmission Date: 20120403
  Serious: Yes (Hospitalization)
  Sender: FDA-Public Use
  Company Number: DE-ABBOTT-11P-062-0878434-00

PATIENT
  Age: 20 Year
  Sex: Male

DRUGS (5)
  1. SYSTEMIC STEROIDS [Concomitant]
     Indication: CROHN'S DISEASE
     Dosage: 5MG DAILY
  2. AZATHIOPRINE [Concomitant]
     Indication: CROHN'S DISEASE
     Dosage: 2-2.5 MG/KG BODY WEIGHT  = 125 MG
     Route: 048
  3. CALCIUM [Concomitant]
     Indication: PRODUCT USED FOR UNKNOWN INDICATION
  4. VITAMIN D [Concomitant]
     Indication: PRODUCT USED FOR UNKNOWN INDICATION
  5. HUMIRA [Suspect]
     Indication: CROHN'S DISEASE
     Dosage: 80 MG IN WEEK 0; 40 MG IN WEEK 2; THEN 40 MG EVERY WEEK
     Route: 058
     Dates: start: 20100824, end: 20110901

REACTIONS (2)
  - CONDITION AGGRAVATED [None]
  - INTESTINAL STENOSIS [None]
